FAERS Safety Report 4932008-1 (Version None)
Quarter: 2006Q1

REPORT INFORMATION
  Report Type: 
  Country: None (occurrence: None)
  Receive Date: 20060303
  Receipt Date: 20060213
  Transmission Date: 20060701
  Serious: Yes (Other)
  Sender: FDA-Public Use
  Company Number: NL-GLAXOSMITHKLINE-B0413259A

PATIENT
  Age: 66 Year
  Sex: Male

DRUGS (1)
  1. AVANDIA [Suspect]
     Indication: DIABETES MELLITUS NON-INSULIN-DEPENDENT
     Dosage: 4MG TWICE PER DAY
     Route: 065
     Dates: start: 20051125, end: 20051129

REACTIONS (3)
  - ABNORMAL FAECES [None]
  - FAECES DISCOLOURED [None]
  - RENAL CELL CARCINOMA STAGE UNSPECIFIED [None]
